FAERS Safety Report 20747149 (Version 1)
Quarter: 2022Q2

REPORT INFORMATION
  Report Type: Spontaneous
  Country: US (occurrence: US)
  Receive Date: 20220425
  Receipt Date: 20220425
  Transmission Date: 20220720
  Serious: No
  Sender: FDA-Public Use
  Company Number: US-PFIZER INC-202101004978

PATIENT
  Age: 19 Year
  Sex: Male
  Weight: 68.04 kg

DRUGS (1)
  1. GABAPENTIN [Suspect]
     Active Substance: GABAPENTIN
     Indication: Colitis ulcerative
     Dosage: UNK

REACTIONS (1)
  - Drug ineffective for unapproved indication [Unknown]
